FAERS Safety Report 18273941 (Version 1)
Quarter: 2020Q3

REPORT INFORMATION
  Report Type: Report from Study
  Country: BR (occurrence: BR)
  Receive Date: 20200916
  Receipt Date: 20200916
  Transmission Date: 20201103
  Serious: Yes (Other)
  Sender: FDA-Public Use
  Company Number: BR-B.I. PHARMACEUTICALS,INC./RIDGEFIELD-2020-BI-042977

PATIENT
  Age: 73 Year
  Sex: Female
  Weight: 76 kg

DRUGS (7)
  1. DIOVAN [Concomitant]
     Active Substance: VALSARTAN
     Indication: BLOOD PRESSURE MEASUREMENT
     Route: 050
  2. CLOPIDOGREL BISULFATE. [Concomitant]
     Active Substance: CLOPIDOGREL BISULFATE
     Indication: ANTIPLATELET THERAPY
     Route: 050
  3. ADDERA D3 [Concomitant]
     Active Substance: CHOLECALCIFEROL
     Indication: OSTEOPOROSIS
     Dosage: VALUE 7000 BUT COULD NOT INFORM THE UNIT, SHE JUST KNOW THAT IT WAS NOT THE MILLIGRAM
     Route: 050
  4. PANTOPRAZOLE [Concomitant]
     Active Substance: PANTOPRAZOLE
     Indication: GASTRITIS
     Route: 050
  5. ANCORON [Concomitant]
     Active Substance: AMIODARONE HYDROCHLORIDE
     Indication: ARRHYTHMIA
     Route: 050
  6. SUSTRATE [Concomitant]
     Active Substance: PROPATYL NITRATE
     Indication: CHEST PAIN
     Route: 050
  7. SPIRIVA RESPIMAT [Suspect]
     Active Substance: TIOTROPIUM BROMIDE
     Indication: ASTHMA
     Dosage: PATIENT USES AT NIGHT (DID NOT SPECIFY HOW MAY PUFFS) AEROSOL
     Route: 055

REACTIONS (10)
  - Fatigue [Unknown]
  - Osteoarthritis [Not Recovered/Not Resolved]
  - Cough [Not Recovered/Not Resolved]
  - Labyrinthitis [Unknown]
  - Hand fracture [Recovered/Resolved]
  - Vestibular disorder [Unknown]
  - Bone pain [Unknown]
  - Deafness [Unknown]
  - Hypoaesthesia [Recovered/Resolved]
  - Arthritis [Not Recovered/Not Resolved]

NARRATIVE: CASE EVENT DATE: 2019
